FAERS Safety Report 25675976 (Version 2)
Quarter: 2025Q3

REPORT INFORMATION
  Report Type: Spontaneous
  Country: US (occurrence: US)
  Receive Date: 20250813
  Receipt Date: 20250930
  Transmission Date: 20251021
  Serious: No
  Sender: PFIZER
  Company Number: US-PFIZER INC-202500160589

PATIENT
  Age: 13 Year
  Sex: Male

DRUGS (1)
  1. GENOTROPIN [Suspect]
     Active Substance: SOMATROPIN
     Dosage: 1.8 MG, DAILY 7 DAYS/WEEK
     Dates: start: 20250801

REACTIONS (3)
  - Product knowledge deficit [Unknown]
  - Wrong technique in device usage process [Unknown]
  - Device mechanical issue [Unknown]
